FAERS Safety Report 15630330 (Version 1)
Quarter: 2018Q4

REPORT INFORMATION
  Report Type: Spontaneous
  Country: US (occurrence: US)
  Receive Date: 20181118
  Receipt Date: 20181118
  Transmission Date: 20190205
  Serious: No
  Sender: FDA-Public Use
  Company Number: US-ASTRAZENECA-2018SF48816

PATIENT
  Age: 68 Year
  Sex: Male

DRUGS (2)
  1. DALIRESP [Suspect]
     Active Substance: ROFLUMILAST
     Dosage: 500.0MG UNKNOWN
     Route: 048
     Dates: start: 201809, end: 201811
  2. DALIRESP [Suspect]
     Active Substance: ROFLUMILAST
     Dosage: 250.0MG UNKNOWN
     Route: 048

REACTIONS (1)
  - Gastrointestinal disorder [Recovered/Resolved]

NARRATIVE: CASE EVENT DATE: 2018
